FAERS Safety Report 23287981 (Version 2)
Quarter: 2024Q4

REPORT INFORMATION
  Report Type: Spontaneous
  Country: CA (occurrence: CA)
  Receive Date: 20231212
  Receipt Date: 20241206
  Transmission Date: 20250114
  Serious: Yes (Hospitalization)
  Sender: PFIZER
  Company Number: CA-PFIZER INC-202300170424

PATIENT
  Age: 30 Year
  Sex: Female
  Weight: 51 kg

DRUGS (5)
  1. RUXIENCE [Suspect]
     Active Substance: RITUXIMAB-PVVR
     Indication: Glomerulonephritis
     Dosage: 500 MG X 2 DOSES 2 WEEKS INTERVAL
     Route: 042
     Dates: start: 20230504
  2. RUXIENCE [Suspect]
     Active Substance: RITUXIMAB-PVVR
     Indication: Autoimmune disorder
     Dosage: 500 MG X 2 DOSES 2 WEEKS INTERVAL
     Route: 042
     Dates: start: 20230518, end: 20230518
  3. RUXIENCE [Suspect]
     Active Substance: RITUXIMAB-PVVR
     Dosage: 500 MG 1 DOSE
     Route: 042
     Dates: start: 20231121, end: 20231121
  4. RUXIENCE [Suspect]
     Active Substance: RITUXIMAB-PVVR
     Dosage: 500 MG, EVERY 6 MONTH
     Route: 042
     Dates: start: 20240529
  5. RUXIENCE [Suspect]
     Active Substance: RITUXIMAB-PVVR
     Dosage: 500 MG, 26 WEEKS AND 2 DAYS (Q6 MONTHS)
     Route: 042
     Dates: start: 20241129, end: 20241129

REACTIONS (3)
  - Liver disorder [Unknown]
  - Off label use [Unknown]
  - Incorrect product administration duration [Unknown]

NARRATIVE: CASE EVENT DATE: 20230504
